FAERS Safety Report 8030139-3 (Version None)
Quarter: 2011Q4

REPORT INFORMATION
  Report Type: 
  Country: None (occurrence: None)
  Receive Date: 20111130
  Receipt Date: 20110627
  Transmission Date: 20120403
  Serious: Yes (Hospitalization, Other)
  Sender: FDA-Public Use
  Company Number: US201002003765

PATIENT
  Age: 71 Year
  Sex: Male
  Weight: 111.1 kg

DRUGS (8)
  1. ASPIRIN /USA/ (ACETYLSALICYLIC ACID) [Concomitant]
  2. LASIX [Concomitant]
  3. DRUG USED IN DIABETES [Concomitant]
  4. ZOCOR [Concomitant]
  5. BYETTA [Suspect]
     Indication: DIABETES MELLITUS
     Dates: start: 20050801, end: 20051001
  6. EXENATIDE UNK STRENGTH PEN, DISPOSABLE DEVICE (EXENATIDE PEN (UNKNOWN [Concomitant]
  7. GLYBURIDE [Concomitant]
  8. ALTACE [Concomitant]

REACTIONS (4)
  - FATIGUE [None]
  - ASTHENIA [None]
  - ABDOMINAL DISTENSION [None]
  - PANCREATITIS ACUTE [None]
